FAERS Safety Report 20304734 (Version 2)
Quarter: 2022Q1

REPORT INFORMATION
  Report Type: Spontaneous
  Country: IT (occurrence: IT)
  Receive Date: 20220106
  Receipt Date: 20220113
  Transmission Date: 20220423
  Serious: Yes (Congenital Anomaly)
  Sender: FDA-Public Use
  Company Number: IT-Fresenius Kabi-FK202114006

PATIENT
  Age: 20 Week

DRUGS (1)
  1. ADALIMUMAB [Suspect]
     Active Substance: ADALIMUMAB
     Indication: Crohn^s disease
     Dosage: UNK
     Route: 064
     Dates: start: 202001, end: 20201127

REACTIONS (5)
  - Arnold-Chiari malformation [Not Recovered/Not Resolved]
  - Neural tube defect [Not Recovered/Not Resolved]
  - Hydrocephalus [Not Recovered/Not Resolved]
  - Scoliosis [Not Recovered/Not Resolved]
  - Foetal exposure during pregnancy [Unknown]
